FAERS Safety Report 13344932 (Version 2)
Quarter: 2017Q1

REPORT INFORMATION
  Report Type: Report from Study
  Country: None (occurrence: US)
  Receive Date: 20170317
  Receipt Date: 20170323
  Transmission Date: 20170428
  Serious: Yes (Hospitalization)
  Sender: FDA-Public Use
  Company Number: US-ABBVIE-17K-163-1906602-00

PATIENT
  Age: 71 Year
  Sex: Female
  Weight: 71.73 kg

DRUGS (1)
  1. HUMIRA [Suspect]
     Active Substance: ADALIMUMAB
     Indication: RHEUMATOID ARTHRITIS
     Route: 058
     Dates: start: 20160205, end: 201703

REACTIONS (6)
  - Cardiac failure congestive [Unknown]
  - Rash [Unknown]
  - Atrial fibrillation [Unknown]
  - Respiratory failure [Recovered/Resolved]
  - Infection [Unknown]
  - Pneumonia [Unknown]

NARRATIVE: CASE EVENT DATE: 201701
